FAERS Safety Report 23874391 (Version 2)
Quarter: 2024Q2

REPORT INFORMATION
  Report Type: Report from Study
  Country: CA (occurrence: CA)
  Receive Date: 20240520
  Receipt Date: 20240529
  Transmission Date: 20240715
  Serious: Yes (Other)
  Sender: FDA-Public Use
  Company Number: CA-E2BLSMVVAL-CLI/CAN/24/0007345

PATIENT
  Age: 75 Year
  Sex: Female

DRUGS (3)
  1. ZOLEDRONIC ACID [Suspect]
     Active Substance: ZOLEDRONIC ACID
     Indication: Osteoporosis
     Dosage: 5MG/100ML
     Route: 065
     Dates: start: 20231211
  2. Erelzi Injection [Concomitant]
     Indication: Product used for unknown indication
     Route: 065
  3. CANNABIDIOL\HERBALS [Concomitant]
     Active Substance: CANNABIDIOL\HERBALS
     Indication: Product used for unknown indication
     Dosage: AT NIGHT
     Route: 065

REACTIONS (1)
  - White coat hypertension [Unknown]
